FAERS Safety Report 13336953 (Version 1)
Quarter: 2017Q1

REPORT INFORMATION
  Report Type: Spontaneous
  Country: US (occurrence: US)
  Receive Date: 20170314
  Receipt Date: 20170314
  Transmission Date: 20170428
  Serious: Yes (Other)
  Sender: FDA-Public Use
  Company Number: None

PATIENT
  Age: 59 Year
  Sex: Female
  Weight: 81 kg

DRUGS (2)
  1. ZOLOFT [Concomitant]
     Active Substance: SERTRALINE HYDROCHLORIDE
  2. MOVIPREP [Suspect]
     Active Substance: ASCORBIC ACID\POLYETHYLENE GLYCOL 3350\POTASSIUM CHLORIDE\SODIUM ASCORBATE\SODIUM CHLORIDE\SODIUM SULFATE
     Indication: COLONOSCOPY
     Dosage: ?          QUANTITY:32 OUNCE(S);?
     Route: 048
     Dates: start: 20170219, end: 20170219

REACTIONS (6)
  - Fear [None]
  - Gait disturbance [None]
  - Headache [None]
  - Feeling abnormal [None]
  - Drug prescribing error [None]
  - Speech disorder [None]

NARRATIVE: CASE EVENT DATE: 20170219
